FAERS Safety Report 23230265 (Version 10)
Quarter: 2025Q4

REPORT INFORMATION
  Report Type: Report from Study
  Country: CA (occurrence: CA)
  Receive Date: 20231127
  Receipt Date: 20251224
  Transmission Date: 20260118
  Serious: Yes (Hospitalization, Other)
  Sender: TAKEDA
  Company Number: CA-TAKEDA-2023TUS111086

PATIENT
  Age: 34 Year
  Sex: Female
  Weight: 68 kg

DRUGS (9)
  1. VEDOLIZUMAB [Suspect]
     Active Substance: VEDOLIZUMAB
     Indication: Colitis ulcerative
     Dosage: 300 MILLIGRAM
  2. VEDOLIZUMAB [Suspect]
     Active Substance: VEDOLIZUMAB
     Dosage: 300 MILLIGRAM, Q4WEEKS
     Dates: start: 20240620
  3. VEDOLIZUMAB [Suspect]
     Active Substance: VEDOLIZUMAB
     Dosage: 300 MILLIGRAM, Q4WEEKS
  4. VEDOLIZUMAB [Suspect]
     Active Substance: VEDOLIZUMAB
     Dosage: 300 MILLIGRAM, Q4WEEKS
  5. VEDOLIZUMAB [Suspect]
     Active Substance: VEDOLIZUMAB
     Dosage: 300 MILLIGRAM, Q4WEEKS
  6. VEDOLIZUMAB [Suspect]
     Active Substance: VEDOLIZUMAB
     Dosage: 300 MILLIGRAM
  7. HUMAN IMMUNOGLOBULIN G [Suspect]
     Active Substance: HUMAN IMMUNOGLOBULIN G
     Dosage: UNK
  8. Salofalk [Concomitant]
     Dosage: UNK
  9. PENTASA [Concomitant]
     Active Substance: MESALAMINE
     Dosage: UNK

REACTIONS (12)
  - Drug hypersensitivity [Recovered/Resolved]
  - Abortion spontaneous [Recovered/Resolved]
  - Colitis ulcerative [Unknown]
  - Pancreatitis [Unknown]
  - Erythromelalgia [Recovered/Resolved]
  - Hyperparathyroidism [Unknown]
  - Hypertension [Recovered/Resolved]
  - Hypersensitivity [Recovered/Resolved]
  - Pregnancy [Recovered/Resolved]
  - Therapeutic reaction time decreased [Unknown]
  - Off label use [Unknown]
  - Endometriosis [Recovering/Resolving]

NARRATIVE: CASE EVENT DATE: 20240620
